FAERS Safety Report 16426056 (Version 1)
Quarter: 2019Q2

REPORT INFORMATION
  Report Type: Report from Study
  Country: US (occurrence: US)
  Receive Date: 20190613
  Receipt Date: 20190613
  Transmission Date: 20190711
  Serious: Yes (Hospitalization)
  Sender: FDA-Public Use
  Company Number: US-BAYER-2019-111088

PATIENT
  Age: 66 Year
  Sex: Female
  Weight: 113.38 kg

DRUGS (2)
  1. ADEMPAS [Suspect]
     Active Substance: RIOCIGUAT
     Indication: PULMONARY ARTERIAL HYPERTENSION
     Dosage: UNK
     Dates: start: 20190305
  2. ADEMPAS [Suspect]
     Active Substance: RIOCIGUAT
     Indication: PULMONARY ARTERIAL HYPERTENSION
     Dosage: 2 MG, TID
     Route: 048
     Dates: start: 2019

REACTIONS (6)
  - Procedural pain [Not Recovered/Not Resolved]
  - Traumatic fracture [None]
  - Balance disorder [None]
  - Fall [None]
  - Dyspnoea [Recovered/Resolved]
  - Hypotension [None]

NARRATIVE: CASE EVENT DATE: 2019
